FAERS Safety Report 9429243 (Version 1)
Quarter: 2013Q3

REPORT INFORMATION
  Report Type: Spontaneous
  Country: US (occurrence: US)
  Receive Date: 20130730
  Receipt Date: 20130730
  Transmission Date: 20140515
  Serious: No
  Sender: FDA-Public Use
  Company Number: US-BAYER-2013-090530

PATIENT
  Age: 60 Year
  Sex: Female

DRUGS (2)
  1. CLIMARA PRO [Suspect]
     Dosage: UNK
     Route: 062
  2. SYNTHROID [Concomitant]
     Indication: HYPOTHYROIDISM
     Dosage: 112 MG, UNK

REACTIONS (4)
  - Pre-existing condition improved [None]
  - Pre-existing condition improved [None]
  - Pre-existing condition improved [None]
  - Drug ineffective [None]
